FAERS Safety Report 14009384 (Version 1)
Quarter: 2017Q3

REPORT INFORMATION
  Report Type: Spontaneous
  Country: US (occurrence: US)
  Receive Date: 20170925
  Receipt Date: 20170925
  Transmission Date: 20171128
  Serious: Yes (Other)
  Sender: FDA-Public Use
  Company Number: US-ALLERGAN-1753980US

PATIENT
  Sex: Female

DRUGS (1)
  1. LINZESS [Suspect]
     Active Substance: LINACLOTIDE
     Indication: CONSTIPATION
     Dosage: 72 ?G, QOD
     Route: 065

REACTIONS (4)
  - Drug prescribing error [Unknown]
  - Diarrhoea [Unknown]
  - Diverticulitis [Unknown]
  - Inappropriate schedule of drug administration [Unknown]
